FAERS Safety Report 24253245 (Version 2)
Quarter: 2025Q1

REPORT INFORMATION
  Report Type: Spontaneous
  Country: US (occurrence: US)
  Receive Date: 20240827
  Receipt Date: 20250205
  Transmission Date: 20250409
  Serious: No
  Sender: NOBELPHARMA AMERICA, LLC
  Company Number: US-Nobelpharma America, LLC-NPA-2024-00734

PATIENT
  Age: 3 Year
  Sex: Female

DRUGS (1)
  1. HYFTOR [Suspect]
     Active Substance: SIROLIMUS
     Indication: Lymphatic malformation
     Dosage: USE SMALLEST AMOUNT POSSIBLE FOR EACH APPLICATION, NOT MORE THAN A DIME SIZED AMOUNT
     Route: 061
     Dates: start: 20240124

REACTIONS (7)
  - Oral pain [Unknown]
  - Skin haemorrhage [Unknown]
  - Product dose omission issue [Unknown]
  - Off label use [Unknown]
  - Off label use [Unknown]
  - Drug ineffective for unapproved indication [Unknown]
  - Off label use [Unknown]

NARRATIVE: CASE EVENT DATE: 20250124
